FAERS Safety Report 6927935-X (Version None)
Quarter: 2010Q3

REPORT INFORMATION
  Report Type: 
  Country: None (occurrence: None)
  Receive Date: 20100812
  Receipt Date: 20100727
  Transmission Date: 20110219
  Serious: Yes (Other)
  Sender: FDA-Public Use
  Company Number: CR10-0262

PATIENT
  Sex: Female

DRUGS (1)
  1. PRIMATENE MIST [Suspect]

REACTIONS (2)
  - DRUG INEFFECTIVE [None]
  - LOSS OF CONSCIOUSNESS [None]
